FAERS Safety Report 10727740 (Version 1)
Quarter: 2015Q1

REPORT INFORMATION
  Report Type: Spontaneous
  Country: AU (occurrence: AU)
  Receive Date: 20150121
  Receipt Date: 20150121
  Transmission Date: 20150721
  Serious: Yes (Other)
  Sender: FDA-Public Use
  Company Number: AU-ROXANE LABORATORIES, INC.-2015-RO-00081RO

PATIENT
  Age: 69 Year
  Sex: Female

DRUGS (2)
  1. ANASTROZOLE. [Suspect]
     Active Substance: ANASTROZOLE
     Indication: BREAST CANCER STAGE II
     Dosage: 1 MG
     Route: 048
  2. ANASTROZOLE. [Suspect]
     Active Substance: ANASTROZOLE
     Dosage: 1 MG
     Route: 048

REACTIONS (4)
  - Headache [Recovered/Resolved]
  - Hyperhidrosis [Recovered/Resolved]
  - Hypersensitivity vasculitis [Recovered/Resolved]
  - Arthralgia [Recovered/Resolved]
